FAERS Safety Report 16681007 (Version 1)
Quarter: 2019Q3

REPORT INFORMATION
  Report Type: Report from Study
  Country: None (occurrence: IL)
  Receive Date: 20190808
  Receipt Date: 20190808
  Transmission Date: 20191004
  Serious: Yes (Other)
  Sender: FDA-Public Use
  Company Number: IL-ABBVIE-19K-082-2878729-00

PATIENT
  Sex: Male

DRUGS (1)
  1. DUODOPA [Suspect]
     Active Substance: CARBIDOPA\LEVODOPA
     Indication: PARKINSON^S DISEASE
     Dosage: MORNING DOSE 10ML,??CONTINUOUS DOSE 2.8ML/HOUR,??EXTRA DOSE 1ML
     Route: 050
     Dates: start: 20181018

REACTIONS (1)
  - Malignant polyp [Not Recovered/Not Resolved]
